FAERS Safety Report 18738349 (Version 1)
Quarter: 2021Q1

REPORT INFORMATION
  Report Type: Spontaneous
  Country: US (occurrence: US)
  Receive Date: 20210113
  Receipt Date: 20210113
  Transmission Date: 20210419
  Serious: Yes (Hospitalization)
  Sender: FDA-Public Use
  Company Number: US-ROCHE-2748880

PATIENT
  Sex: Female
  Weight: 40.41 kg

DRUGS (3)
  1. PULMOZYME [Suspect]
     Active Substance: DORNASE ALFA
     Indication: CYSTIC FIBROSIS
     Route: 065
  2. GENTAMICIN. [Concomitant]
     Active Substance: GENTAMICIN
     Dates: start: 20170206
  3. KITABIS PAK [Concomitant]
     Active Substance: TOBRAMYCIN
     Dates: start: 20170201

REACTIONS (2)
  - Lung disorder [Unknown]
  - Pneumonia [Recovered/Resolved]
